FAERS Safety Report 8447603-5 (Version None)
Quarter: 2012Q2

REPORT INFORMATION
  Report Type: 
  Country: None (occurrence: None)
  Receive Date: 20120619
  Receipt Date: 20120606
  Transmission Date: 20120825
  Serious: Yes (Death)
  Sender: FDA-Public Use
  Company Number: US-MYLANLABS-2010S1011739

PATIENT
  Age: 36 Year
  Sex: Female
  Weight: 127.01 kg

DRUGS (9)
  1. NAPROXEN [Concomitant]
  2. MINOCYCLINE HCL [Concomitant]
  3. DESYREL [Concomitant]
  4. PREVACID [Concomitant]
  5. ATIVAN [Concomitant]
  6. ZOFRAN [Concomitant]
  7. FENTANYL-100 [Suspect]
     Indication: PAIN
     Route: 062
     Dates: end: 20080621
  8. OXYCODONE AND ACETAMINOPHEN [Concomitant]
  9. RESTORIL [Concomitant]

REACTIONS (2)
  - TOXICITY TO VARIOUS AGENTS [None]
  - OVERDOSE [None]
